FAERS Safety Report 18115391 (Version 4)
Quarter: 2021Q2

REPORT INFORMATION
  Report Type: Report from Study
  Country: FR (occurrence: FR)
  Receive Date: 20200805
  Receipt Date: 20210515
  Transmission Date: 20210717
  Serious: Yes (Hospitalization, Other)
  Sender: FDA-Public Use
  Company Number: NVSC2020FR041775

PATIENT
  Age: 60 Year
  Sex: Female
  Weight: 90 kg

DRUGS (17)
  1. ADOPORT [Suspect]
     Active Substance: TACROLIMUS
     Indication: RENAL TRANSPLANT
     Dosage: 2.5 MG
     Route: 048
     Dates: start: 20200122
  2. ADOPORT [Suspect]
     Active Substance: TACROLIMUS
     Dosage: 9 MG
     Route: 048
     Dates: start: 20200122
  3. ADOPORT [Suspect]
     Active Substance: TACROLIMUS
     Dosage: 2 MG
     Route: 048
     Dates: start: 20200122
  4. ADOPORT [Suspect]
     Active Substance: TACROLIMUS
     Dosage: 5 MG
     Route: 065
  5. MYFORTIC [Suspect]
     Active Substance: MYCOPHENOLATE SODIUM
     Indication: PROPHYLAXIS AGAINST TRANSPLANT REJECTION
     Dosage: UNK (360M/J)
     Route: 065
     Dates: start: 20200819
  6. THYMOGLOBULINE [Concomitant]
     Active Substance: LAPINE T-LYMPHOCYTE IMMUNE GLOBULIN
     Indication: PROPHYLAXIS
     Dosage: 75 MG, UNKNOWN
     Route: 065
     Dates: start: 20200120, end: 20200120
  7. ADOPORT [Suspect]
     Active Substance: TACROLIMUS
     Dosage: 5.5 MG
     Route: 065
  8. THYMOGLOBULINE [Concomitant]
     Active Substance: LAPINE T-LYMPHOCYTE IMMUNE GLOBULIN
     Dosage: 75 MG, UNKNOWN
     Route: 065
     Dates: start: 20200122, end: 20200122
  9. ADOPORT [Suspect]
     Active Substance: TACROLIMUS
     Dosage: 2.5 MG
     Route: 065
  10. MYFORTIC [Suspect]
     Active Substance: MYCOPHENOLATE SODIUM
     Indication: PROPHYLAXIS
     Dosage: UNK (360 MG/ 2 FOIS/JOUR)
     Route: 065
     Dates: start: 20200121, end: 20200423
  11. BACTRIM [Suspect]
     Active Substance: SULFAMETHOXAZOLE\TRIMETHOPRIM
     Indication: PROPHYLAXIS
     Dosage: 1 DF (400/80 MG)
     Route: 065
     Dates: start: 20200121, end: 20200127
  12. BACTRIM [Suspect]
     Active Substance: SULFAMETHOXAZOLE\TRIMETHOPRIM
     Dosage: 400 MG
     Route: 065
     Dates: start: 20200327, end: 20200422
  13. ADOPORT [Suspect]
     Active Substance: TACROLIMUS
     Dosage: 3 MG
     Route: 065
  14. ADOPORT [Suspect]
     Active Substance: TACROLIMUS
     Dosage: 7 MG
     Route: 048
  15. ADOPORT [Suspect]
     Active Substance: TACROLIMUS
     Dosage: 2 MG
     Route: 065
     Dates: start: 20200709
  16. ADOPORT [Suspect]
     Active Substance: TACROLIMUS
     Dosage: 5 MG
     Route: 048
     Dates: start: 20200122
  17. AMLOR [Concomitant]
     Active Substance: AMLODIPINE BESYLATE
     Indication: HYPERTENSION
     Dosage: UNK
     Route: 065
     Dates: end: 202002

REACTIONS (14)
  - Neutropenia [Recovered/Resolved]
  - Thrombocytopenia [Recovered/Resolved]
  - Acidosis [Recovering/Resolving]
  - Leukopenia [Recovered/Resolved]
  - Diarrhoea [Recovered/Resolved]
  - Renal impairment [Not Recovered/Not Resolved]
  - Leukopenia [Recovered/Resolved]
  - General physical health deterioration [Recovered/Resolved]
  - Hypertension [Recovered/Resolved]
  - Cholestasis [Recovered/Resolved]
  - Thrombocytopenia [Recovered/Resolved]
  - Urinary tract infection bacterial [Recovered/Resolved]
  - Acute kidney injury [Recovered/Resolved]
  - Inflammation [Recovered/Resolved]

NARRATIVE: CASE EVENT DATE: 20200123
